FAERS Safety Report 14285960 (Version 1)
Quarter: 2017Q4

REPORT INFORMATION
  Report Type: Report from Study
  Country: BR (occurrence: BR)
  Receive Date: 20171214
  Receipt Date: 20171214
  Transmission Date: 20180321
  Serious: Yes (Other)
  Sender: FDA-Public Use
  Company Number: PHHY2017BR181891

PATIENT
  Sex: Female

DRUGS (1)
  1. DIOVAN HCT [Suspect]
     Active Substance: HYDROCHLOROTHIAZIDE\VALSARTAN
     Indication: HYPERTENSION
     Dosage: (HYDROCHLOROTHIAZIDE 12.5MG/VALSARTAN 160 MG)
     Route: 065

REACTIONS (7)
  - Mouth haemorrhage [Unknown]
  - Speech disorder [Unknown]
  - Dysphagia [Unknown]
  - Head discomfort [Unknown]
  - Asthenia [Unknown]
  - Haemorrhage [Unknown]
  - Pain [Unknown]
